FAERS Safety Report 8992382 (Version 1)
Quarter: 2012Q4

REPORT INFORMATION
  Report Type: 
  Country: TR (occurrence: TR)
  Receive Date: 20121231
  Receipt Date: 20121231
  Transmission Date: 20130627
  Serious: Yes (Hospitalization, Other)
  Sender: FDA-Public Use
  Company Number: TR-JNJFOC-20121210818

PATIENT
  Age: 22 Year
  Sex: Female

DRUGS (4)
  1. INFLIXIMAB, RECOMBINANT [Suspect]
     Indication: PSORIATIC ARTHROPATHY
     Route: 042
  2. METHOTREXATE [Suspect]
     Indication: PSORIATIC ARTHROPATHY
     Route: 065
  3. METHOTREXATE [Suspect]
     Indication: PSORIATIC ARTHROPATHY
     Route: 065
  4. ETANERCEPT [Suspect]
     Indication: PSORIATIC ARTHROPATHY
     Route: 065

REACTIONS (5)
  - Aortitis [Recovering/Resolving]
  - Cachexia [Recovering/Resolving]
  - Tuberculosis [Unknown]
  - Psoriatic arthropathy [Recovered/Resolved]
  - Onycholysis [Unknown]
